FAERS Safety Report 7738005-5 (Version None)
Quarter: 2011Q3

REPORT INFORMATION
  Report Type: 
  Country: None (occurrence: None)
  Receive Date: 20110906
  Receipt Date: 20110823
  Transmission Date: 20111222
  Serious: Yes (Death, Life-Threatening, Hospitalization)
  Sender: FDA-Public Use
  Company Number: 2011GW000414

PATIENT
  Age: 71 Year
  Sex: Female

DRUGS (4)
  1. FLECAINIDE ACETATE [Suspect]
     Indication: PRODUCT USED FOR UNKNOWN INDICATION
     Dosage: PO
     Route: 048
     Dates: end: 20110701
  2. TRACLEER [Suspect]
     Indication: PULMONARY ARTERIAL HYPERTENSION
     Dosage: PO
     Route: 048
     Dates: end: 20110701
  3. ASPIRIN [Concomitant]
  4. COUMADIN [Concomitant]

REACTIONS (3)
  - RESPIRATORY DISTRESS [None]
  - DRUG HYPERSENSITIVITY [None]
  - PNEUMONIA [None]
